FAERS Safety Report 7729417-4 (Version None)
Quarter: 2011Q3

REPORT INFORMATION
  Report Type: 
  Country: None (occurrence: None)
  Receive Date: 20110831
  Receipt Date: 20110831
  Transmission Date: 20111222
  Serious: Yes (Hospitalization)
  Sender: FDA-Public Use
  Company Number: None

PATIENT
  Sex: Female
  Weight: 119.75 kg

DRUGS (1)
  1. CISPLATIN [Suspect]
     Dosage: 100 MG

REACTIONS (5)
  - ACUTE RESPIRATORY FAILURE [None]
  - DYSPNOEA [None]
  - PULMONARY EMBOLISM [None]
  - DIZZINESS [None]
  - DEEP VEIN THROMBOSIS [None]
